FAERS Safety Report 5714747-8 (Version None)
Quarter: 2008Q2

REPORT INFORMATION
  Report Type: 
  Country: None (occurrence: None)
  Receive Date: 20080423
  Receipt Date: 20080422
  Transmission Date: 20081010
  Serious: Yes (Hospitalization)
  Sender: FDA-Public Use
  Company Number: FR-BRISTOL-MYERS SQUIBB COMPANY-14110357

PATIENT
  Age: 71 Year
  Sex: Male
  Weight: 72 kg

DRUGS (6)
  1. MUCOMYSTENDO [Suspect]
     Route: 055
     Dates: start: 20080308
  2. ATROVENT [Concomitant]
  3. PULMICORT [Concomitant]
  4. MEDROL [Concomitant]
  5. PREDNISONE [Concomitant]
     Dosage: 1 DOSAGE FORM = 1 TABLET. 2TABS IN MORNING AND 1 TAB-MIDDAY.
     Dates: start: 20080307
  6. NEULASTA [Concomitant]
     Route: 058
     Dates: start: 20080307

REACTIONS (3)
  - DYSPNOEA [None]
  - MALAISE [None]
  - PHARMACEUTICAL PRODUCT COMPLAINT [None]
